FAERS Safety Report 9452358 (Version 1)
Quarter: 2013Q3

REPORT INFORMATION
  Report Type: Spontaneous
  Country: US (occurrence: US)
  Receive Date: 20130812
  Receipt Date: 20130812
  Transmission Date: 20140515
  Serious: Yes (Disabling, Other)
  Sender: FDA-Public Use
  Company Number: US-ELI_LILLY_AND_COMPANY-US201308000078

PATIENT
  Sex: Female

DRUGS (7)
  1. CYMBALTA [Suspect]
     Indication: NEUROPATHY PERIPHERAL
     Dosage: 120 MG, QD
     Route: 065
     Dates: start: 2005
  2. CRESTOR [Concomitant]
     Indication: BLOOD CHOLESTEROL
     Dosage: 20 MG, UNKNOWN
     Route: 065
  3. LEVOTHYROXIN [Concomitant]
     Dosage: 175 UG, UNKNOWN
     Route: 065
  4. HUMALOG [Concomitant]
     Dosage: UNK, UNKNOWN
     Route: 065
  5. LISINOPRIL [Concomitant]
     Dosage: 10 MG, UNKNOWN
     Route: 065
  6. ASPIRIN [Concomitant]
     Dosage: 325 MG, UNKNOWN
     Route: 065
  7. SINUS [Concomitant]
     Dosage: UNK, UNKNOWN
     Route: 065

REACTIONS (4)
  - Diabetes mellitus [Unknown]
  - Coronary artery occlusion [Unknown]
  - Cardiac disorder [Unknown]
  - Plague [Unknown]
